FAERS Safety Report 18604508 (Version 5)
Quarter: 2021Q1

REPORT INFORMATION
  Report Type: Spontaneous
  Country: IT (occurrence: IT)
  Receive Date: 20201211
  Receipt Date: 20210301
  Transmission Date: 20210419
  Serious: Yes (Hospitalization, Other)
  Sender: FDA-Public Use
  Company Number: IT-AUROBINDO-AUR-APL-2020-060845

PATIENT
  Age: 69 Year

DRUGS (3)
  1. IMATINIB. [Suspect]
     Active Substance: IMATINIB MESYLATE
     Indication: PHILADELPHIA CHROMOSOME POSITIVE
     Dosage: 400 MILLIGRAM, ONCE A DAY, DOSE ADJUSTMENT
     Route: 065
  2. IMATINIB. [Suspect]
     Active Substance: IMATINIB MESYLATE
     Dosage: 600 MILLIGRAM, ONCE A DAY, RESUMED THE FULL DOSE,
     Route: 065
  3. IMATINIB. [Suspect]
     Active Substance: IMATINIB MESYLATE
     Indication: ACUTE LYMPHOCYTIC LEUKAEMIA
     Dosage: 600 MILLIGRAM, ONCE A DAY
     Route: 065

REACTIONS (4)
  - Haemorrhage subcutaneous [Unknown]
  - Gastrointestinal haemorrhage [Recovered/Resolved]
  - Platelet dysfunction [Recovered/Resolved]
  - Skin haemorrhage [Recovered/Resolved]
